FAERS Safety Report 17491089 (Version 2)
Quarter: 2020Q1

REPORT INFORMATION
  Report Type: Spontaneous
  Country: US (occurrence: US)
  Receive Date: 20200303
  Receipt Date: 20200311
  Transmission Date: 20200409
  Serious: No
  Sender: FDA-Public Use
  Company Number: US-PFIZER INC-2020081147

PATIENT
  Age: 76 Year
  Sex: Female

DRUGS (15)
  1. PARAPLATIN [Concomitant]
     Active Substance: CARBOPLATIN
     Dosage: 487.2 MG, UNK
     Dates: start: 20170630
  2. TAXOTERE [Concomitant]
     Active Substance: DOCETAXEL
     Dosage: 147.8 MG, UNK
     Dates: start: 20170920
  3. SIMVASTATIN. [Concomitant]
     Active Substance: SIMVASTATIN
     Dosage: 10 MG, UNK
     Dates: start: 20130601
  4. TAXOTERE [Concomitant]
     Active Substance: DOCETAXEL
     Indication: CHEMOTHERAPY
     Dosage: 147.8 MG, UNK
     Dates: start: 20170608
  5. DOCETAXEL. [Suspect]
     Active Substance: DOCETAXEL
     Indication: BREAST CANCER FEMALE
     Dosage: UNK, CYCLIC (EVERY THREE WEEKS, 06 CYCLES)
     Dates: start: 20170608, end: 20170920
  6. PARAPLATIN [Concomitant]
     Active Substance: CARBOPLATIN
     Dosage: 459 MG, UNK
     Dates: start: 20170830
  7. TAXOTERE [Concomitant]
     Active Substance: DOCETAXEL
     Dosage: 147.8 MG, UNK
     Dates: start: 20170810
  8. PARAPLATIN [Concomitant]
     Active Substance: CARBOPLATIN
     Indication: CHEMOTHERAPY
     Dosage: 433.2 MG, UNK
     Dates: start: 20170608
  9. PARAPLATIN [Concomitant]
     Active Substance: CARBOPLATIN
     Dosage: 481.2 MG, UNK
     Dates: start: 20170920
  10. TAXOTERE [Concomitant]
     Active Substance: DOCETAXEL
     Dosage: 147.8 MG, UNK
     Dates: start: 20170630
  11. PARAPLATIN [Concomitant]
     Active Substance: CARBOPLATIN
     Dosage: 430 MG, UNK
     Dates: start: 20170721
  12. TAXOTERE [Concomitant]
     Active Substance: DOCETAXEL
     Dosage: 147.8 MG, UNK
     Dates: start: 20170830
  13. PARAPLATIN [Concomitant]
     Active Substance: CARBOPLATIN
     Dosage: 437 MG, UNK
     Dates: start: 20170810
  14. TAXOTERE [Concomitant]
     Active Substance: DOCETAXEL
     Dosage: 147.8 MG, UNK
     Dates: start: 20170721
  15. MELOXICAM. [Concomitant]
     Active Substance: MELOXICAM
     Dosage: UNK
     Dates: start: 20130423, end: 20150831

REACTIONS (5)
  - Hair disorder [Not Recovered/Not Resolved]
  - Hair texture abnormal [Not Recovered/Not Resolved]
  - Madarosis [Not Recovered/Not Resolved]
  - Hair colour changes [Not Recovered/Not Resolved]
  - Alopecia [Not Recovered/Not Resolved]

NARRATIVE: CASE EVENT DATE: 201706
